FAERS Safety Report 15898864 (Version 2)
Quarter: 2019Q1

REPORT INFORMATION
  Report Type: Report from Study
  Country: JP (occurrence: JP)
  Receive Date: 20190201
  Receipt Date: 20190331
  Transmission Date: 20190417
  Serious: Yes (Death)
  Sender: FDA-Public Use
  Company Number: JP-UCBSA-2019003086

PATIENT
  Age: 51 Year
  Sex: Male
  Weight: 76 kg

DRUGS (6)
  1. LACOSAMIDE. [Suspect]
     Active Substance: LACOSAMIDE
     Indication: SIMPLE PARTIAL SEIZURES
     Dosage: 50 MG, 2X/DAY (BID)
     Route: 048
     Dates: start: 20180215, end: 20180331
  2. E KEPPRA [Concomitant]
     Active Substance: LEVETIRACETAM
     Indication: SIMPLE PARTIAL SEIZURES
     Dosage: 1000 MG DAILY
     Route: 048
     Dates: end: 20180331
  3. MAGNESIUM OXIDE. [Concomitant]
     Active Substance: MAGNESIUM OXIDE
     Indication: PRODUCT USED FOR UNKNOWN INDICATION
     Dosage: 750 MG DAILY
     Route: 048
     Dates: end: 20180331
  4. TEMODAL [Concomitant]
     Active Substance: TEMOZOLOMIDE
     Indication: PRODUCT USED FOR UNKNOWN INDICATION
     Dosage: 360 MG DAILY
     Route: 048
     Dates: end: 20180328
  5. SENNOSIDE [Concomitant]
     Active Substance: SENNOSIDES
     Indication: PRODUCT USED FOR UNKNOWN INDICATION
     Dosage: 24 MG DAILY
     Route: 048
     Dates: end: 20180328
  6. RAMOSETRON HYDROCHLORIDE [Concomitant]
     Active Substance: RAMOSETRON HYDROCHLORIDE
     Indication: PRODUCT USED FOR UNKNOWN INDICATION
     Dosage: 0.1 MG DAILY
     Route: 048
     Dates: end: 20180328

REACTIONS (1)
  - Glioma [Fatal]
